FAERS Safety Report 23766328 (Version 2)
Quarter: 2024Q2

REPORT INFORMATION
  Report Type: Spontaneous
  Country: MX (occurrence: MX)
  Receive Date: 20240422
  Receipt Date: 20240603
  Transmission Date: 20240716
  Serious: No
  Sender: FDA-Public Use
  Company Number: MX-Y-MABS THERAPEUTICS, INC.-EAP2024-MX-001543

PATIENT

DRUGS (12)
  1. DANYELZA [Suspect]
     Active Substance: NAXITAMAB-GQGK
     Indication: Neuroblastoma recurrent
     Dosage: CYCLE 1, DOSE 1
     Route: 042
     Dates: start: 20240319, end: 20240319
  2. DANYELZA [Suspect]
     Active Substance: NAXITAMAB-GQGK
     Dosage: CYCLE 2, DOSE 1 (HITS DAY 2)
     Route: 042
     Dates: start: 20240411, end: 20240411
  3. DANYELZA [Suspect]
     Active Substance: NAXITAMAB-GQGK
     Dosage: CYCLE 2, DOSE 2 (HITS DAY 4)
     Route: 042
     Dates: start: 20240413, end: 20240413
  4. IRINOTECAN [Concomitant]
     Active Substance: IRINOTECAN
     Indication: Neuroblastoma recurrent
     Dosage: 42 MILLIGRAM
     Dates: start: 20240410, end: 20240414
  5. NIMAN [Concomitant]
     Indication: Neuroblastoma recurrent
     Dosage: 126 MILLIGRAM
     Dates: start: 20240410, end: 20240410
  6. CEFIXIME [Concomitant]
     Active Substance: CEFIXIME
     Dosage: 180 MILLIGRAM, BID
     Dates: start: 20240406, end: 20240419
  7. ACETAMINOPHEN [Concomitant]
     Active Substance: ACETAMINOPHEN
     Indication: Premedication
  8. DIPHENHYDRAMINE [Concomitant]
     Active Substance: DIPHENHYDRAMINE
     Indication: Premedication
  9. ONDANSETRON [Concomitant]
     Active Substance: ONDANSETRON
     Indication: Premedication
  10. IMIPRAMINE [Concomitant]
     Active Substance: IMIPRAMINE
     Indication: Premedication
  11. LIDOCAINE [Concomitant]
     Active Substance: LIDOCAINE
     Indication: Premedication
  12. CLONAZEPAM [Concomitant]
     Active Substance: CLONAZEPAM
     Indication: Premedication

REACTIONS (4)
  - Anaphylactic reaction [Recovered/Resolved]
  - Chest pain [Recovered/Resolved]
  - Bronchospasm [Recovered/Resolved]
  - Rash [Recovered/Resolved]

NARRATIVE: CASE EVENT DATE: 20240413
